FAERS Safety Report 9243215 (Version 1)
Quarter: 2013Q2

REPORT INFORMATION
  Report Type: Spontaneous
  Country: US (occurrence: US)
  Receive Date: 20130419
  Receipt Date: 20130419
  Transmission Date: 20140414
  Serious: No
  Sender: FDA-Public Use
  Company Number: US-BAYER-2013-046807

PATIENT
  Sex: Female

DRUGS (4)
  1. MIRENA [Suspect]
     Dosage: 20 MCG/24HR, CONT
     Route: 015
  2. YAZ [Suspect]
     Dosage: 1 DF, QD
     Route: 048
  3. ADDERALL [Concomitant]
     Indication: ATTENTION DEFICIT/HYPERACTIVITY DISORDER
  4. AMBIEN [Concomitant]
     Indication: INSOMNIA

REACTIONS (6)
  - Seborrhoea [None]
  - Pain in extremity [None]
  - Dizziness [None]
  - Urticaria [None]
  - Attention deficit/hyperactivity disorder [None]
  - Insomnia [None]
